FAERS Safety Report 8277010-X (Version None)
Quarter: 2012Q2

REPORT INFORMATION
  Report Type: 
  Country: None (occurrence: None)
  Receive Date: 20120412
  Receipt Date: 20120402
  Transmission Date: 20120825
  Serious: Yes (Hospitalization, Other)
  Sender: FDA-Public Use
  Company Number: FR-EISAI INC-E3810-05419-SPO-FR

PATIENT
  Sex: Female

DRUGS (5)
  1. VOLTAREN [Suspect]
     Route: 061
     Dates: start: 20111201
  2. RABEPRAZOLE SODIUM [Suspect]
     Route: 048
     Dates: start: 20110101, end: 20120204
  3. VALSARTAN  AND HYDROCHLOROTHIAZIDE [Suspect]
     Indication: HYPERTENSION
     Dosage: 160 / 12.5 MG
     Route: 048
     Dates: start: 20110101
  4. CRESTOR [Suspect]
     Route: 048
     Dates: start: 20100101
  5. LYRICA [Suspect]
     Route: 048
     Dates: start: 20110101

REACTIONS (3)
  - RENAL FAILURE ACUTE [None]
  - SHOCK [None]
  - PULMONARY EMBOLISM [None]
